FAERS Safety Report 6119057-5 (Version None)
Quarter: 2009Q1

REPORT INFORMATION
  Report Type: 
  Country: None (occurrence: None)
  Receive Date: 20090316
  Receipt Date: 20090312
  Transmission Date: 20090719
  Serious: Yes (Life-Threatening)
  Sender: FDA-Public Use
  Company Number: DE-ASTRAZENECA-2009PK00634

PATIENT
  Age: 414 Month
  Sex: Female
  Weight: 60 kg

DRUGS (4)
  1. SEROQUEL [Suspect]
     Indication: PERSONALITY DISORDER
     Route: 048
     Dates: start: 20081230, end: 20090219
  2. SEROQUEL [Interacting]
     Indication: TACHYPHRENIA
     Route: 048
     Dates: start: 20081230, end: 20090219
  3. SEROQUEL [Interacting]
     Indication: HALLUCINATION
     Route: 048
     Dates: start: 20081230, end: 20090219
  4. CIPRAMIL [Interacting]
     Indication: DEPRESSION
     Route: 048
     Dates: start: 20090210, end: 20090219

REACTIONS (2)
  - DRUG INTERACTION [None]
  - NEUTROPENIA [None]
